FAERS Safety Report 7362101-8 (Version None)
Quarter: 2011Q1

REPORT INFORMATION
  Report Type: 
  Country: None (occurrence: None)
  Receive Date: 20110315
  Receipt Date: 20110315
  Transmission Date: 20110831
  Serious: Yes (Life-Threatening, Other)
  Sender: FDA-Public Use
  Company Number: None

PATIENT
  Sex: Male
  Weight: 122.4712 kg

DRUGS (1)
  1. TOPIRAMATE [Suspect]
     Indication: EPILEPSY
     Dosage: 2 PILLS BID PO
     Route: 048
     Dates: start: 20101218, end: 20110201

REACTIONS (2)
  - NO THERAPEUTIC RESPONSE [None]
  - HYPOGLYCAEMIA [None]
